FAERS Safety Report 7184421-2 (Version None)
Quarter: 2010Q4

REPORT INFORMATION
  Report Type: 
  Country: None (occurrence: None)
  Receive Date: 20101222
  Receipt Date: 20100108
  Transmission Date: 20110411
  Serious: No
  Sender: FDA-Public Use
  Company Number: US-PFIZER INC-2010003456

PATIENT
  Sex: Female
  Weight: 60.3 kg

DRUGS (1)
  1. FLUCONAZOLE [Suspect]
     Indication: FUNGAL INFECTION
     Dosage: 150 MG, 1X/DAY
     Route: 048
     Dates: start: 20100103, end: 20100104

REACTIONS (19)
  - ANAL PRURITUS [None]
  - BLISTER [None]
  - GLOSSODYNIA [None]
  - LETHARGY [None]
  - MALAISE [None]
  - OROPHARYNGEAL PAIN [None]
  - PAIN OF SKIN [None]
  - PROCTALGIA [None]
  - PRURITUS GENERALISED [None]
  - SKIN DISCOLOURATION [None]
  - SKIN DISORDER [None]
  - SKIN EXFOLIATION [None]
  - SWOLLEN TONGUE [None]
  - TONGUE BLISTERING [None]
  - TONGUE DISCOLOURATION [None]
  - URTICARIA [None]
  - VAGINAL MUCOSAL BLISTERING [None]
  - VULVOVAGINAL PAIN [None]
  - VULVOVAGINAL PRURITUS [None]
